FAERS Safety Report 10337471 (Version 1)
Quarter: 2014Q3

REPORT INFORMATION
  Report Type: Spontaneous
  Country: US (occurrence: US)
  Receive Date: 20140724
  Receipt Date: 20140724
  Transmission Date: 20150326
  Serious: Yes (Hospitalization)
  Sender: FDA-Public Use
  Company Number: US-ACTELION-A-NJ2014-102409

PATIENT
  Age: 44 Year
  Sex: Female

DRUGS (3)
  1. RIOCIGUAT [Concomitant]
     Active Substance: RIOCIGUAT
     Dosage: 2.5 MG, UNK
     Dates: start: 201401
  2. OXYGEN. [Concomitant]
     Active Substance: OXYGEN
     Dosage: 4 L, UNK
  3. OPSUMIT [Suspect]
     Active Substance: MACITENTAN
     Indication: PULMONARY ARTERIAL HYPERTENSION
     Dosage: UNK
     Route: 048
     Dates: start: 201311

REACTIONS (2)
  - Polycythaemia [Unknown]
  - Haematocrit increased [Unknown]
